FAERS Safety Report 7315230-9 (Version None)
Quarter: 2011Q1

REPORT INFORMATION
  Report Type: 
  Country: None (occurrence: None)
  Receive Date: 20110215
  Receipt Date: 20110124
  Transmission Date: 20110831
  Serious: Yes (Other)
  Sender: FDA-Public Use
  Company Number: 20110070

PATIENT
  Sex: Female

DRUGS (1)
  1. SODIUM BICARBONATE [Suspect]
     Indication: LESION EXCISION
     Dosage: 0.1 ML - 0.2 ML INTRADERMAL
     Route: 023

REACTIONS (2)
  - TENDERNESS [None]
  - INDURATION [None]
